FAERS Safety Report 19494575 (Version 8)
Quarter: 2024Q4

REPORT INFORMATION
  Report Type: Spontaneous
  Country: ES (occurrence: ES)
  Receive Date: 20210706
  Receipt Date: 20241009
  Transmission Date: 20250114
  Serious: Yes (Hospitalization, Other)
  Sender: CELLTRION
  Company Number: ES-CELLTRION INC.-2021ES008852

PATIENT

DRUGS (5)
  1. TRASTUZUMAB [Suspect]
     Active Substance: TRASTUZUMAB
     Indication: HER2 positive breast cancer
     Dosage: ON DAY 1 AT THE DOSE OF 8 MG/KG LOADING DOSE I.V., THEN 6 MG/KG; ON 22/JAN/2021, SHE RECEIVED LAST D
     Route: 042
     Dates: start: 20201209
  2. ATEZOLIZUMAB [Suspect]
     Active Substance: ATEZOLIZUMAB
     Indication: HER2 positive breast cancer
     Dosage: 1200 MG Q3WEEKS; ON 22/JAN/2021, SHE RECEIVED LAST DOSE OF ATEZOLIZUMAB (1200 MG) PRIOR TO ONSET OF
     Route: 042
     Dates: start: 20200924, end: 20210122
  3. PACLITAXEL [Suspect]
     Active Substance: PACLITAXEL
     Indication: HER2 positive breast cancer
     Dosage: ON 29/JAN/2021, SHE RECEIVED LAST DOSE OF PACLITAXEL (172 MG) PRIOR TO ONSET OF SERIOUS ADVERSE EVEN
     Route: 042
     Dates: start: 20201209, end: 20210129
  4. CARBOPLATIN [Suspect]
     Active Substance: CARBOPLATIN
     Indication: HER2 positive breast cancer
     Dosage: AUC 2; ON 29/JAN/2021, SHE RECEIVED LAST DOSE OF CARBOPLATIN (251.36 MG) PRIOR TO ONSET OF SERIOUS A
     Route: 042
     Dates: start: 20201209, end: 20210129
  5. PERTUZUMAB [Concomitant]
     Active Substance: PERTUZUMAB
     Indication: HER2 positive breast cancer
     Dosage: 840 MG; DAY 1 AT THE DOSE OF 840 MG LOADING DOSE I.V., THEN 420 MG; ON 22/JAN/2021, SHE RECEIVED LAS
     Dates: start: 20201209

REACTIONS (1)
  - Acute kidney injury [Recovered/Resolved with Sequelae]

NARRATIVE: CASE EVENT DATE: 20210221
